FAERS Safety Report 4322162-7 (Version None)
Quarter: 2004Q1

REPORT INFORMATION
  Report Type: 
  Country: None (occurrence: None)
  Receive Date: 20040319
  Receipt Date: 20040305
  Transmission Date: 20041129
  Serious: Yes (Hospitalization)
  Sender: FDA-Public Use
  Company Number: A04200300680

PATIENT
  Age: 36 Year
  Sex: Male

DRUGS (4)
  1. ARIXTRA [Suspect]
     Indication: SURGERY
     Dosage: 2.5 MG ONCE
     Route: 058
     Dates: start: 20030906, end: 20030906
  2. ARIXTRA [Suspect]
     Indication: THROMBOSIS PROPHYLAXIS
     Dosage: 2.5 MG ONCE
     Route: 058
     Dates: start: 20030906, end: 20030906
  3. MARCUMAR [Concomitant]
  4. CONCOR 5 PLUS (BISOPROLOL+HYDROCHLOROTHIAZIDE) [Concomitant]

REACTIONS (2)
  - EPISTAXIS [None]
  - HAEMORRHAGE [None]
